FAERS Safety Report 9771285 (Version 2)
Quarter: 2014Q1

REPORT INFORMATION
  Report Type: Report from Study
  Country: IT (occurrence: IT)
  Receive Date: 20131218
  Receipt Date: 20140101
  Transmission Date: 20141002
  Serious: Yes (Life-Threatening, Hospitalization)
  Sender: FDA-Public Use
  Company Number: IT-US-EMD SERONO, INC.-7258187

PATIENT
  Age: 56 Year
  Sex: Male

DRUGS (2)
  1. REBIF [Suspect]
     Indication: MULTIPLE SCLEROSIS
     Route: 058
     Dates: start: 20110510, end: 20130624
  2. PARACETAMOL [Suspect]
     Indication: PROPHYLAXIS
     Route: 048
     Dates: start: 20110510, end: 20130624

REACTIONS (1)
  - Cerebellar haemorrhage [Recovered/Resolved with Sequelae]
